FAERS Safety Report 10818178 (Version 1)
Quarter: 2015Q1

REPORT INFORMATION
  Report Type: Spontaneous
  Country: US (occurrence: US)
  Receive Date: 20150218
  Receipt Date: 20150218
  Transmission Date: 20150721
  Serious: Yes (Hospitalization, Disabling)
  Sender: FDA-Public Use
  Company Number: US-EISAI MEDICAL RESEARCH-E2080-00712-SPO-US

PATIENT
  Sex: Male

DRUGS (7)
  1. VALPROIC ACID. [Concomitant]
     Active Substance: VALPROIC ACID
     Dosage: 1750 MG
  2. LEVETIRACETAM XR [Concomitant]
  3. ZONISAMIDE. [Suspect]
     Active Substance: ZONISAMIDE
     Dosage: UNKNOWN
  4. RUFINAMIDE [Suspect]
     Active Substance: RUFINAMIDE
     Indication: PARTIAL SEIZURES
     Dosage: UNKNOWN
     Route: 048
  5. VALPROIC ACID. [Concomitant]
     Active Substance: VALPROIC ACID
  6. LEVETIRACETAM XR [Concomitant]
  7. LACOSAMIDE [Suspect]
     Active Substance: LACOSAMIDE
     Indication: PARTIAL SEIZURES
     Dosage: UNKNOWN
     Route: 048

REACTIONS (3)
  - Drug ineffective [Unknown]
  - Nausea [Unknown]
  - Status epilepticus [Recovered/Resolved with Sequelae]
